FAERS Safety Report 6142685-8 (Version None)
Quarter: 2009Q2

REPORT INFORMATION
  Report Type: 
  Country: None (occurrence: None)
  Receive Date: 20090402
  Receipt Date: 20090402
  Transmission Date: 20091009
  Serious: Yes (Other)
  Sender: FDA-Public Use
  Company Number: None

PATIENT
  Age: 59 Year
  Sex: Male
  Weight: 104.8 kg

DRUGS (1)
  1. BUSPIRONE HCL [Suspect]
     Indication: DEPRESSION
     Dosage: 10 MG TID PO
     Route: 048
     Dates: start: 20070814, end: 20081120

REACTIONS (5)
  - HEADACHE [None]
  - PRODUCT QUALITY ISSUE [None]
  - THROAT TIGHTNESS [None]
  - TINNITUS [None]
  - VISION BLURRED [None]
